FAERS Safety Report 20787847 (Version 1)
Quarter: 2022Q2

REPORT INFORMATION
  Report Type: Spontaneous
  Country: US (occurrence: None)
  Receive Date: 20220505
  Receipt Date: 20220505
  Transmission Date: 20220721
  Serious: No
  Sender: FDA-Public Use
  Company Number: US-ROCHE-2962826

PATIENT
  Sex: Female

DRUGS (1)
  1. OCREVUS [Suspect]
     Active Substance: OCRELIZUMAB
     Indication: Multiple sclerosis
     Dosage: STRENGTH:300MG/10ML, DOSE-EVERY 6 MONTHS?THERAPY START DATE: 21/OCT (YEAR NOT SPECIFIED)
     Route: 042

REACTIONS (2)
  - Fatigue [Unknown]
  - Limb discomfort [Unknown]
